FAERS Safety Report 8839921 (Version 1)
Quarter: 2012Q4

REPORT INFORMATION
  Report Type: Spontaneous
  Country: GR (occurrence: None)
  Receive Date: 20121012
  Receipt Date: 20121012
  Transmission Date: 20130627
  Serious: Yes (Other)
  Sender: FDA-Public Use
  Company Number: 201210023

PATIENT
  Age: 30 Year
  Sex: Male

DRUGS (4)
  1. TESTOSTERONE [Suspect]
     Indication: PRODUCT USED FOR UNKNOWN INDICATION
  2. EPHEDRINE [Suspect]
  3. COCAINE [Suspect]
  4. TAURINE [Suspect]

REACTIONS (7)
  - Depression [None]
  - Alcohol abuse [None]
  - Drug abuse [None]
  - Aggression [None]
  - Agitation [None]
  - Mania [None]
  - Treatment noncompliance [None]
